FAERS Safety Report 13735809 (Version 1)
Quarter: 2017Q3

REPORT INFORMATION
  Report Type: Spontaneous
  Country: AU (occurrence: AU)
  Receive Date: 20170710
  Receipt Date: 20170710
  Transmission Date: 20171127
  Serious: Yes (Other)
  Sender: FDA-Public Use
  Company Number: PHHY2011AU11355

PATIENT
  Age: 42 Year
  Sex: Female

DRUGS (1)
  1. METHYSERGIDE MALEATE [Suspect]
     Active Substance: METHYSERGIDE MALEATE
     Dosage: UNK

REACTIONS (1)
  - Acute kidney injury [Unknown]
